FAERS Safety Report 21049257 (Version 1)
Quarter: 2022Q3

REPORT INFORMATION
  Report Type: Spontaneous
  Country: US (occurrence: US)
  Receive Date: 20220706
  Receipt Date: 20220706
  Transmission Date: 20221026
  Serious: No
  Sender: FDA-Public Use
  Company Number: US-PFIZER INC-202200921111

PATIENT
  Age: 36 Year
  Sex: Female

DRUGS (3)
  1. PAXLOVID [Suspect]
     Active Substance: NIRMATRELVIR\RITONAVIR
     Indication: COVID-19 treatment
     Dosage: UNK
     Dates: start: 20220627, end: 20220701
  2. LEVOTHYROXINE [Concomitant]
     Active Substance: LEVOTHYROXINE
     Dosage: UNK
  3. PROGESTERONE [Concomitant]
     Active Substance: PROGESTERONE
     Indication: Contraception
     Dosage: UNK

REACTIONS (4)
  - Cough [Recovering/Resolving]
  - Sneezing [Recovering/Resolving]
  - Anosmia [Recovering/Resolving]
  - Upper respiratory tract congestion [Recovering/Resolving]

NARRATIVE: CASE EVENT DATE: 20220702
